FAERS Safety Report 10034618 (Version 2)
Quarter: 2014Q2

REPORT INFORMATION
  Report Type: Spontaneous
  Country: US (occurrence: US)
  Receive Date: 20140325
  Receipt Date: 20140401
  Transmission Date: 20141212
  Serious: Yes (Hospitalization)
  Sender: FDA-Public Use
  Company Number: US-GLENMARK GENERICS INC.-2014GMK009002

PATIENT
  Age: 83 Year
  Sex: Female

DRUGS (7)
  1. HYDRALAZINE HCL [Suspect]
     Indication: PRODUCT USED FOR UNKNOWN INDICATION
     Dosage: 75 MG, BID
  2. FELODIPINE [Concomitant]
     Indication: PRODUCT USED FOR UNKNOWN INDICATION
     Dosage: 5 MG, OD
  3. FUROSEMIDE [Concomitant]
     Indication: PRODUCT USED FOR UNKNOWN INDICATION
     Dosage: 20 MG, OD
  4. LEVOTHYROXINE [Concomitant]
     Indication: PRODUCT USED FOR UNKNOWN INDICATION
     Dosage: 100 ?G, OD
  5. LOSARTAN [Concomitant]
     Indication: PRODUCT USED FOR UNKNOWN INDICATION
     Dosage: 75 MG, OD
  6. METOPROLOL [Concomitant]
     Indication: HYPERTENSION
     Dosage: 25 MG, BID
  7. METOPROLOL [Concomitant]
     Dosage: 50 MG, BID

REACTIONS (19)
  - Glomerulonephritis [Recovered/Resolved]
  - Autoantibody positive [Not Recovered/Not Resolved]
  - Urinary sediment present [Recovered/Resolved]
  - Antineutrophil cytoplasmic antibody positive [Not Recovered/Not Resolved]
  - Protein urine present [Recovered/Resolved]
  - Blood creatinine increased [Recovered/Resolved]
  - Blood urine present [Recovered/Resolved]
  - Kidney fibrosis [Recovered/Resolved]
  - Renal failure acute [Recovered/Resolved]
  - Anaemia of chronic disease [Recovered/Resolved]
  - Pallor [Recovered/Resolved]
  - Hypersensitivity vasculitis [Recovered/Resolved]
  - Weight decreased [Recovered/Resolved]
  - Rash pruritic [Recovered/Resolved]
  - Excoriation [Recovered/Resolved]
  - Petechiae [Recovered/Resolved]
  - Ecchymosis [Recovered/Resolved]
  - Arthralgia [Recovered/Resolved]
  - Dyspnoea [Recovered/Resolved]
